FAERS Safety Report 21833187 (Version 6)
Quarter: 2023Q1

REPORT INFORMATION
  Report Type: Spontaneous
  Country: CA (occurrence: CA)
  Receive Date: 20230106
  Receipt Date: 20230329
  Transmission Date: 20230417
  Serious: Yes (Other)
  Sender: FDA-Public Use
  Company Number: CA-CELLTRION INC.-2022CA022145

PATIENT

DRUGS (8)
  1. INFLECTRA [Suspect]
     Active Substance: INFLIXIMAB-DYYB
     Indication: Colitis ulcerative
     Dosage: 5 MG/KG, WEEKS 0, 2, 6, THEN Q8WEEKS
     Route: 042
     Dates: start: 20221216, end: 20221216
  2. INFLECTRA [Suspect]
     Active Substance: INFLIXIMAB-DYYB
     Dosage: 5 MG/KG, WEEKS 0, 2, 6, THEN Q8WEEKS
     Route: 042
     Dates: start: 20221216, end: 20221229
  3. INFLECTRA [Suspect]
     Active Substance: INFLIXIMAB-DYYB
     Dosage: 5 MG/KG, WEEKS 0, 2, 6, THEN Q8WEEKS
     Route: 042
     Dates: start: 20221229, end: 20221229
  4. INFLECTRA [Suspect]
     Active Substance: INFLIXIMAB-DYYB
     Dosage: 10 MG/KG, WEEK 6 THEN EVERY 4 WEEKS
     Route: 042
     Dates: start: 20230126, end: 20230126
  5. INFLECTRA [Suspect]
     Active Substance: INFLIXIMAB-DYYB
     Dosage: 10 MG/KG, WEEK 6 THEN EVERY 4 WEEKS
     Route: 042
     Dates: start: 20230126, end: 20230126
  6. INFLECTRA [Suspect]
     Active Substance: INFLIXIMAB-DYYB
     Dosage: 10 MG/KG, WEEK 6 THEN EVERY 4 WEEKS
     Route: 042
     Dates: start: 20230126, end: 20230126
  7. INFLECTRA [Suspect]
     Active Substance: INFLIXIMAB-DYYB
     Dosage: 380MG (5MG/KG) Q4WEEKS
     Route: 042
     Dates: start: 20230220
  8. INFLECTRA [Suspect]
     Active Substance: INFLIXIMAB-DYYB
     Dosage: 577.5MG EVERY 4 WEEKS 7.5MG/KG
     Route: 042
     Dates: start: 20230321

REACTIONS (11)
  - Condition aggravated [Recovered/Resolved]
  - Drug effect less than expected [Unknown]
  - Off label use [Unknown]
  - Off label use [Unknown]
  - Heart rate increased [Unknown]
  - Fatigue [Recovered/Resolved]
  - Migraine [Recovered/Resolved]
  - Ear pain [Recovered/Resolved]
  - Ecchymosis [Recovered/Resolved]
  - Back pain [Not Recovered/Not Resolved]
  - Neck pain [Not Recovered/Not Resolved]

NARRATIVE: CASE EVENT DATE: 20221201
